FAERS Safety Report 15012656 (Version 1)
Quarter: 2018Q2

REPORT INFORMATION
  Report Type: Spontaneous
  Country: CH (occurrence: CH)
  Receive Date: 20180614
  Receipt Date: 20180614
  Transmission Date: 20180711
  Serious: Yes (Hospitalization)
  Sender: FDA-Public Use
  Company Number: CH-NAPPMUNDI-GBR-2018-0056610

PATIENT
  Age: 68 Year
  Sex: Male
  Weight: 81 kg

DRUGS (33)
  1. PRAVASTATIN. [Concomitant]
     Active Substance: PRAVASTATIN
     Dosage: 40MG TAB. P.O. 1-0-0
     Route: 048
     Dates: end: 20180514
  2. PLAVIX [Concomitant]
     Active Substance: CLOPIDOGREL BISULFATE
     Dosage: UNK
     Dates: start: 20180519
  3. TARGIN [Suspect]
     Active Substance: NALOXONE HYDROCHLORIDE\OXYCODONE HYDROCHLORIDE
     Indication: PRODUCT USED FOR UNKNOWN INDICATION
     Dosage: 20/10 1-1-0-1
     Route: 065
     Dates: start: 201805, end: 20180517
  4. PANTOZOL [Concomitant]
     Active Substance: PANTOPRAZOLE SODIUM
     Dosage: 40 MG 1-0-1
     Dates: start: 20180505
  5. MAGNESIUM [Concomitant]
     Active Substance: MAGNESIUM
     Dosage: 2.5 MMOL 2-2-2
     Dates: start: 20180505
  6. PLAVIX [Concomitant]
     Active Substance: CLOPIDOGREL BISULFATE
     Dosage: 75 MG1-0-0
     Dates: start: 20180505, end: 20180517
  7. FRAGMIN [Concomitant]
     Active Substance: DALTEPARIN SODIUM
     Dosage: 5000 IU 0-0-1
     Dates: start: 20180505, end: 20180517
  8. HEPARIN [Concomitant]
     Active Substance: HEPARIN SODIUM
     Dosage: UNK
     Dates: start: 20180517, end: 20180521
  9. GLYCERYL TRINITRATE [Concomitant]
     Active Substance: NITROGLYCERIN
     Dosage: 10 0-0-0-1
     Dates: start: 20180510
  10. ROCURONIUM [Concomitant]
     Active Substance: ROCURONIUM BROMIDE
     Indication: SURGERY
     Dosage: 170 MG
     Dates: start: 20180517, end: 20180517
  11. NORADRENALIN                       /00127501/ [Concomitant]
     Active Substance: NOREPINEPHRINE\NOREPINEPHRINE BITARTRATE
     Indication: SURGERY
     Dosage: UNK
     Dates: start: 20180517, end: 20180517
  12. CEFUROXIM                          /00454602/ [Concomitant]
     Active Substance: CEFUROXIME
     Indication: POSTOPERATIVE CARE
     Dosage: UNK
     Dates: start: 20180517, end: 20180519
  13. IPRATROPIUM BROMIDE. [Concomitant]
     Active Substance: IPRATROPIUM BROMIDE
     Dosage: 1-1-1-1
     Route: 055
  14. PROPOFOL. [Concomitant]
     Active Substance: PROPOFOL
     Indication: SURGERY
     Dosage: 150 MG
     Dates: start: 20180517, end: 20180517
  15. FLUIMUCIL [Concomitant]
     Active Substance: ACETYLCYSTEINE
     Dosage: UNK
     Dates: start: 20180512, end: 20180517
  16. ADRENALIN                          /00003901/ [Concomitant]
     Active Substance: EPINEPHRINE
     Indication: SURGERY
     Dosage: UNK
     Dates: start: 20180517, end: 20180517
  17. MILRINONE [Suspect]
     Active Substance: MILRINONE
     Indication: PRODUCT USED FOR UNKNOWN INDICATION
     Dosage: 200 MCG/H
     Route: 065
     Dates: start: 20180517, end: 20180517
  18. ASPIRIN CARDIO [Concomitant]
     Active Substance: ASPIRIN
     Dosage: 100MG TAB. P.O. 1-0-0
     Route: 048
  19. FENOFIBRATE. [Concomitant]
     Active Substance: FENOFIBRATE
     Dosage: 1-0-0
     Route: 048
     Dates: end: 20180515
  20. PANTOZOL [Concomitant]
     Active Substance: PANTOPRAZOLE SODIUM
     Dosage: 25 MG 1-0-1
     Dates: start: 20180505
  21. TIOTROPIUM BROMIDE MONOHYDRATE [Concomitant]
     Active Substance: TIOTROPIUM BROMIDE MONOHYDRATE
     Dosage: 2-0-0
  22. FENTANYL. [Concomitant]
     Active Substance: FENTANYL
     Indication: SURGERY
     Dosage: 1.8 MG
     Dates: start: 20180517, end: 20180517
  23. DORMICUM                           /00036201/ [Concomitant]
     Active Substance: NITRAZEPAM
     Indication: SURGERY
     Dosage: UNK
     Dates: start: 20180517, end: 20180517
  24. DAFALGAN [Suspect]
     Active Substance: ACETAMINOPHEN
     Indication: PRODUCT USED FOR UNKNOWN INDICATION
     Dosage: 500 MG 1-1-1-1
     Route: 065
     Dates: start: 20180505, end: 20180518
  25. TOREM                              /01036501/ [Concomitant]
     Active Substance: TORSEMIDE
     Dosage: 10 MG 1-0-0
     Dates: start: 20180505, end: 20180517
  26. TRANEXAM [Concomitant]
     Active Substance: TRANEXAMIC ACID
     Indication: SURGERY
     Dosage: UNK
     Dates: start: 20180517, end: 20180517
  27. FRAGMIN [Concomitant]
     Active Substance: DALTEPARIN SODIUM
     Dosage: UNK
     Dates: start: 20180522
  28. EPHEDRIN [Concomitant]
     Active Substance: EPHEDRINE HYDROCHLORIDE
     Indication: SURGERY
     Dosage: 5 MG
     Dates: start: 20180517, end: 20180517
  29. CRESTOR [Suspect]
     Active Substance: ROSUVASTATIN CALCIUM
     Indication: PRODUCT USED FOR UNKNOWN INDICATION
     Dosage: 10 MG 0-0-1
     Route: 065
     Dates: start: 20180515, end: 20180516
  30. AUGMENTIN [Suspect]
     Active Substance: AMOXICILLIN\CLAVULANATE POTASSIUM
     Indication: PNEUMONIA ASPIRATION
     Dosage: UNK
     Route: 065
     Dates: start: 20180507, end: 20180514
  31. OXYNORM [Concomitant]
     Active Substance: OXYCODONE HYDROCHLORIDE
  32. RAMIPRIL. [Concomitant]
     Active Substance: RAMIPRIL
     Dosage: 2.5MG TAB. P.O. 0-0-1
     Route: 048
     Dates: start: 20180517, end: 20180519
  33. BELOC-ZOK [Concomitant]
     Active Substance: METOPROLOL SUCCINATE
     Dosage: UNK
     Dates: start: 20180512

REACTIONS (1)
  - Transaminases increased [Recovering/Resolving]

NARRATIVE: CASE EVENT DATE: 20180518
